FAERS Safety Report 11935020 (Version 25)
Quarter: 2017Q1

REPORT INFORMATION
  Report Type: Report from Study
  Country: CA (occurrence: CA)
  Receive Date: 20160121
  Receipt Date: 20170113
  Transmission Date: 20170428
  Serious: Yes (Other)
  Sender: FDA-Public Use
  Company Number: CA-SA-2015SA200468

PATIENT
  Age: 33 Year
  Sex: Female
  Weight: 62 kg

DRUGS (9)
  1. LEMTRADA [Suspect]
     Active Substance: ALEMTUZUMAB
     Indication: RELAPSING-REMITTING MULTIPLE SCLEROSIS
     Route: 041
     Dates: start: 20151207, end: 20151208
  2. SOLU-MEDROL [Concomitant]
     Active Substance: METHYLPREDNISOLONE SODIUM SUCCINATE
     Indication: PREMEDICATION
     Dosage: 1 G QD X 5 DAYS
     Route: 048
     Dates: start: 20151130, end: 20151208
  3. VITAMIN D [Concomitant]
     Active Substance: CHOLECALCIFEROL
     Dosage: QW WEEK
     Route: 048
  4. BENADRYL [Suspect]
     Active Substance: DIPHENHYDRAMINE HYDROCHLORIDE
     Indication: PRURITUS
     Route: 065
     Dates: start: 201512, end: 201512
  5. ACYCLOVIR. [Concomitant]
     Active Substance: ACYCLOVIR
     Indication: PREMEDICATION
     Dosage: DURATION: 35 DAYS
     Route: 048
     Dates: start: 20151130, end: 2016
  6. PANOXYL [Concomitant]
     Active Substance: BENZOYL PEROXIDE
     Route: 048
  7. LEMTRADA [Suspect]
     Active Substance: ALEMTUZUMAB
     Indication: RELAPSING-REMITTING MULTIPLE SCLEROSIS
     Route: 041
     Dates: start: 20151130, end: 20151202
  8. REACTINE [Concomitant]
     Active Substance: CETIRIZINE HYDROCHLORIDE
     Indication: PREMEDICATION
     Route: 048
     Dates: start: 20151130, end: 20151208
  9. RANITIDINE. [Concomitant]
     Active Substance: RANITIDINE
     Indication: PREMEDICATION
     Route: 048
     Dates: start: 20151130, end: 20151208

REACTIONS (47)
  - Metamyelocyte percentage increased [Unknown]
  - Eczema [Not Recovered/Not Resolved]
  - Ear discomfort [Recovered/Resolved]
  - Crystal urine present [Unknown]
  - Urine abnormality [Recovered/Resolved]
  - Neutrophil percentage increased [Not Recovered/Not Resolved]
  - Insomnia [Recovering/Resolving]
  - Diarrhoea [Recovering/Resolving]
  - Bacterial test [Recovered/Resolved]
  - Initial insomnia [Not Recovered/Not Resolved]
  - Platelet count decreased [Recovered/Resolved]
  - Metamyelocyte count increased [Unknown]
  - Night sweats [Not Recovered/Not Resolved]
  - Monocyte percentage increased [Recovered/Resolved]
  - Fatigue [Recovering/Resolving]
  - Leukopenia [Not Recovered/Not Resolved]
  - Hot flush [Recovering/Resolving]
  - Band neutrophil percentage increased [Not Recovered/Not Resolved]
  - Hypoaesthesia [Recovered/Resolved]
  - Vaginal infection [Not Recovered/Not Resolved]
  - Bradycardia [Unknown]
  - White blood cells urine positive [Recovered/Resolved]
  - Headache [Recovering/Resolving]
  - Contusion [Recovered/Resolved]
  - Somnolence [Unknown]
  - Neutropenia [Recovered/Resolved]
  - Lymphocyte percentage increased [Recovered/Resolved]
  - Urine leukocyte esterase positive [Recovered/Resolved]
  - Urinary sediment present [Unknown]
  - Nausea [Recovering/Resolving]
  - Rash [Recovering/Resolving]
  - Nausea [Recovered/Resolved]
  - Oropharyngeal pain [Recovering/Resolving]
  - Pruritus [Not Recovered/Not Resolved]
  - Acne [Not Recovered/Not Resolved]
  - Pruritus [Recovering/Resolving]
  - Lymphocyte percentage decreased [Not Recovered/Not Resolved]
  - Lymphocyte count decreased [Not Recovered/Not Resolved]
  - Urinary tract infection [Recovered/Resolved]
  - Lymphocyte morphology abnormal [Unknown]
  - Myalgia [Recovered/Resolved]
  - White blood cell count decreased [Recovered/Resolved]
  - Neutrophil count decreased [Recovered/Resolved]
  - Balance disorder [Recovered/Resolved]
  - Micturition urgency [Recovered/Resolved]
  - Urticaria [Recovering/Resolving]
  - Neutrophil percentage decreased [Recovered/Resolved]

NARRATIVE: CASE EVENT DATE: 20151130
